FAERS Safety Report 23615910 (Version 1)
Quarter: 2024Q1

REPORT INFORMATION
  Report Type: Spontaneous
  Country: JP (occurrence: JP)
  Receive Date: 20240311
  Receipt Date: 20240311
  Transmission Date: 20240410
  Serious: Yes (Hospitalization, Other)
  Sender: FDA-Public Use
  Company Number: JP-BRISTOL-MYERS SQUIBB COMPANY-2024-033652

PATIENT
  Age: 72 Year
  Sex: Male

DRUGS (2)
  1. ELIQUIS [Suspect]
     Active Substance: APIXABAN
     Indication: Atrial fibrillation
  2. ELIQUIS [Suspect]
     Active Substance: APIXABAN
     Indication: Embolic stroke

REACTIONS (3)
  - Haemorrhage intracranial [Recovering/Resolving]
  - Subdural haematoma [Recovering/Resolving]
  - Brain herniation [Recovering/Resolving]

NARRATIVE: CASE EVENT DATE: 20230101
